FAERS Safety Report 8931414 (Version 2)
Quarter: 2012Q4

REPORT INFORMATION
  Report Type: 
  Country: US (occurrence: US)
  Receive Date: 20121121
  Receipt Date: 20121212
  Transmission Date: 20130627
  Serious: Yes (Death)
  Sender: FDA-Public Use
  Company Number: US-ASTELLAS-1096670

PATIENT
  Sex: Male

DRUGS (1)
  1. TARCEVA [Suspect]
     Indication: TRACHEAL CANCER
     Route: 065
     Dates: start: 200906, end: 20090720

REACTIONS (2)
  - Death [Fatal]
  - Rash [Unknown]
